FAERS Safety Report 13924797 (Version 3)
Quarter: 2017Q4

REPORT INFORMATION
  Report Type: Spontaneous
  Country: US (occurrence: US)
  Receive Date: 20170831
  Receipt Date: 20171018
  Transmission Date: 20180320
  Serious: No
  Sender: FDA-Public Use
  Company Number: US-GLAXOSMITHKLINE-US2017133421

PATIENT
  Age: 49 Year
  Sex: Male

DRUGS (2)
  1. TANZEUM [Suspect]
     Active Substance: ALBIGLUTIDE
     Indication: PRODUCT USED FOR UNKNOWN INDICATION
     Dosage: 50 MG, WE
     Route: 042
  2. TANZEUM [Suspect]
     Active Substance: ALBIGLUTIDE
     Dosage: UNK

REACTIONS (3)
  - Drug dose omission [Unknown]
  - Product quality issue [Unknown]
  - Device leakage [Unknown]

NARRATIVE: CASE EVENT DATE: 201708
